FAERS Safety Report 16043267 (Version 1)
Quarter: 2019Q1

REPORT INFORMATION
  Report Type: Spontaneous
  Country: US (occurrence: US)
  Receive Date: 20190306
  Receipt Date: 20190306
  Transmission Date: 20190418
  Serious: Yes (Hospitalization, Other)
  Sender: FDA-Public Use
  Company Number: US-JNJFOC-20190303341

PATIENT
  Sex: Female

DRUGS (1)
  1. IMBRUVICA [Suspect]
     Active Substance: IBRUTINIB
     Indication: PRODUCT USED FOR UNKNOWN INDICATION
     Route: 048

REACTIONS (7)
  - Sciatica [Unknown]
  - Diarrhoea [Unknown]
  - Off label use [Unknown]
  - Unresponsive to stimuli [Unknown]
  - Arthritis [Unknown]
  - Headache [Unknown]
  - Incorrect dose administered [Unknown]
